FAERS Safety Report 7320566-1 (Version None)
Quarter: 2011Q1

REPORT INFORMATION
  Report Type: 
  Country: None (occurrence: None)
  Receive Date: 20110215
  Receipt Date: 20110201
  Transmission Date: 20110831
  Serious: Yes (Other)
  Sender: FDA-Public Use
  Company Number: FR-004500

PATIENT
  Sex: Male
  Weight: 66 kg

DRUGS (1)
  1. FIRMAGON [Suspect]
     Indication: PROSTATE CANCER METASTATIC
     Dosage: (240 MG 1X SUBCUTANEOUS)
     Route: 058
     Dates: start: 20101224, end: 20101224

REACTIONS (3)
  - BONE PAIN [None]
  - WEIGHT DECREASED [None]
  - CONDITION AGGRAVATED [None]
